FAERS Safety Report 25985111 (Version 1)
Quarter: 2025Q4

REPORT INFORMATION
  Report Type: Spontaneous
  Country: DZ (occurrence: DZ)
  Receive Date: 20251031
  Receipt Date: 20251031
  Transmission Date: 20260117
  Serious: Yes (Other)
  Sender: NOVO NORDISK
  Company Number: DZ-NOVOPROD-1545945

PATIENT
  Age: 73 Year
  Sex: Female

DRUGS (1)
  1. TRESIBA [Suspect]
     Active Substance: INSULIN DEGLUDEC
     Indication: Diabetes mellitus
     Dosage: 8 IU, BID
     Route: 058
     Dates: start: 202509

REACTIONS (4)
  - Transient ischaemic attack [Unknown]
  - Cerebrovascular accident [Unknown]
  - Blood pressure increased [Unknown]
  - Off label use [Recovered/Resolved]

NARRATIVE: CASE EVENT DATE: 20250901
